FAERS Safety Report 19225937 (Version 1)
Quarter: 2021Q2

REPORT INFORMATION
  Report Type: Spontaneous
  Country: NL (occurrence: NL)
  Receive Date: 20210506
  Receipt Date: 20210506
  Transmission Date: 20210717
  Serious: Yes (Other)
  Sender: FDA-Public Use
  Company Number: NL-TEVA-2021-NL-1907528

PATIENT
  Sex: Female

DRUGS (2)
  1. HYDROXOCOBALAMINE INJVLST  500UG/ML / HYDROCOBAMINE INJVLST 500MCG/ML [Concomitant]
     Dosage: INJECTION SOLUTION, 500 UG / ML,THERAPY START DATE ASKU, THERAPY END DATE ASKU
  2. OMEPRAZOL CAPSULE MSR 20MG / BRAND NAME NOT SPECIFIED [Suspect]
     Active Substance: OMEPRAZOLE
     Indication: GASTROOESOPHAGEAL REFLUX DISEASE
     Dosage: 2 DOSAGE FORMS DAILY; MORNING
     Dates: start: 20210301, end: 20210419

REACTIONS (2)
  - Condition aggravated [Not Recovered/Not Resolved]
  - Subacute cutaneous lupus erythematosus [Not Recovered/Not Resolved]
